FAERS Safety Report 10440264 (Version 1)
Quarter: 2014Q3

REPORT INFORMATION
  Report Type: Spontaneous
  Country: US (occurrence: US)
  Receive Date: 20140908
  Receipt Date: 20140908
  Transmission Date: 20150326
  Serious: No
  Sender: FDA-Public Use
  Company Number: US-BRISTOL-MYERS SQUIBB COMPANY-20704904

PATIENT
  Age: 51 Year
  Sex: Female
  Weight: 87.53 kg

DRUGS (11)
  1. FLUTICASONE [Concomitant]
     Active Substance: FLUTICASONE\FLUTICASONE PROPIONATE
  2. KETOCONAZOLE CREAM [Concomitant]
     Active Substance: KETOCONAZOLE
     Indication: SKIN IRRITATION
  3. VITAMIN D [Concomitant]
     Active Substance: CHOLECALCIFEROL
  4. ESTRACE [Concomitant]
     Active Substance: ESTRADIOL
  5. RANITIDINE HCL TABS 150MG [Concomitant]
  6. TYLENOL [Concomitant]
     Active Substance: ACETAMINOPHEN
     Indication: HEADACHE
  7. CLONAZEPAM. [Concomitant]
     Active Substance: CLONAZEPAM
  8. TYLENOL [Concomitant]
     Active Substance: ACETAMINOPHEN
     Indication: ARTHRALGIA
  9. DESONIDE. [Concomitant]
     Active Substance: DESONIDE
  10. ABILIFY [Suspect]
     Active Substance: ARIPIPRAZOLE
     Indication: BIPOLAR DISORDER
  11. LIPITOR [Concomitant]
     Active Substance: ATORVASTATIN CALCIUM

REACTIONS (1)
  - Muscle spasms [Recovered/Resolved]
